FAERS Safety Report 9285445 (Version 1)
Quarter: 2013Q2

REPORT INFORMATION
  Report Type: Spontaneous
  Country: US (occurrence: US)
  Receive Date: 20130513
  Receipt Date: 20130513
  Transmission Date: 20140414
  Serious: No
  Sender: FDA-Public Use
  Company Number: US-PFIZER INC-2013144862

PATIENT
  Age: 10 Year
  Sex: Male
  Weight: 37.19 kg

DRUGS (1)
  1. JUNIOR STRENGTH ADVIL [Suspect]
     Indication: PAIN
     Dosage: (2X100MG), 2X/DAY
     Route: 048
     Dates: start: 20130507, end: 20130508

REACTIONS (1)
  - Abdominal pain upper [Not Recovered/Not Resolved]
